FAERS Safety Report 21888155 (Version 2)
Quarter: 2023Q1

REPORT INFORMATION
  Report Type: Other
  Country: US (occurrence: None)
  Receive Date: 20230120
  Receipt Date: 20230124
  Transmission Date: 20230418
  Serious: Yes (Hospitalization, Other)
  Sender: FDA-Public Use
  Company Number: US-ROCHE-3264832

PATIENT
  Age: 68 Year
  Sex: Female
  Weight: 90.4 kg

DRUGS (12)
  1. TECENTRIQ [Suspect]
     Active Substance: ATEZOLIZUMAB
     Indication: Myelodysplastic syndrome
     Route: 042
  2. BASAGLAR KWIKPEN [Concomitant]
     Active Substance: INSULIN GLARGINE
     Route: 065
  3. BUDESONIDE [Concomitant]
     Active Substance: BUDESONIDE
     Route: 048
  4. CRANBERRY [Concomitant]
     Active Substance: CRANBERRY
     Route: 048
  5. DEFERASIROX [Concomitant]
     Active Substance: DEFERASIROX
     Route: 048
  6. GABAPENTIN [Concomitant]
     Active Substance: GABAPENTIN
     Route: 048
  7. LISINOPRIL [Concomitant]
     Active Substance: LISINOPRIL
     Route: 048
  8. NIRMATRELVIR\RITONAVIR [Concomitant]
     Active Substance: NIRMATRELVIR\RITONAVIR
     Route: 048
  9. NOVOLOG [Concomitant]
     Active Substance: INSULIN ASPART
     Route: 048
  10. ZOFRAN [Concomitant]
     Active Substance: ONDANSETRON HYDROCHLORIDE
  11. COMPAZINE [Concomitant]
     Active Substance: PROCHLORPERAZINE MALEATE
  12. ALLOPURINOL [Concomitant]
     Active Substance: ALLOPURINOL

REACTIONS (22)
  - Decreased appetite [Unknown]
  - Arthralgia [Unknown]
  - Ecchymosis [Unknown]
  - Myalgia [Unknown]
  - Musculoskeletal discomfort [Unknown]
  - Fatigue [Unknown]
  - Thrombocytopenia [Unknown]
  - Diarrhoea [Unknown]
  - Autoimmune colitis [Unknown]
  - Presyncope [Unknown]
  - Dehydration [Unknown]
  - Anaemia [Unknown]
  - Orthostatic hypotension [Unknown]
  - COVID-19 [Unknown]
  - Pain in extremity [Unknown]
  - Paraesthesia [Unknown]
  - Overweight [Unknown]
  - Oedema [Unknown]
  - White blood cell count increased [Unknown]
  - Blood urea increased [Unknown]
  - Blood alkaline phosphatase increased [Unknown]
  - Alanine aminotransferase increased [Unknown]

NARRATIVE: CASE EVENT DATE: 20201226
